FAERS Safety Report 5350764-8 (Version None)
Quarter: 2007Q2

REPORT INFORMATION
  Report Type: 
  Country: None (occurrence: None)
  Receive Date: 20070606
  Receipt Date: 20070606
  Transmission Date: 20071010
  Serious: Yes (Hospitalization)
  Sender: FDA-Public Use
  Company Number: None

PATIENT
  Age: 62 Year
  Sex: Female

DRUGS (2)
  1. VANCOMYCIN [Suspect]
     Indication: CATHETER SITE CELLULITIS
     Dosage: 1GM QD PRN PER LEVEL IV
     Route: 042
     Dates: start: 20070407, end: 20070427
  2. VANCOMYCIN [Suspect]
     Indication: CELLULITIS STAPHYLOCOCCAL
     Dosage: 1GM QD PRN PER LEVEL IV
     Route: 042
     Dates: start: 20070407, end: 20070427

REACTIONS (10)
  - BLOOD CREATININE INCREASED [None]
  - DERMATITIS [None]
  - DERMATITIS EXFOLIATIVE [None]
  - DRUG ERUPTION [None]
  - EOSINOPHILS URINE [None]
  - NEPHRITIS INTERSTITIAL [None]
  - PYREXIA [None]
  - RASH PRURITIC [None]
  - RENAL INJURY [None]
  - RENAL TUBULAR NECROSIS [None]
